FAERS Safety Report 6236471-8 (Version None)
Quarter: 2009Q2

REPORT INFORMATION
  Report Type: 
  Country: None (occurrence: None)
  Receive Date: 20090619
  Receipt Date: 20090608
  Transmission Date: 20091009
  Serious: Yes (Other)
  Sender: FDA-Public Use
  Company Number: US-PFIZER INC-2009225901

PATIENT
  Sex: Male
  Weight: 74.842 kg

DRUGS (9)
  1. VIAGRA [Suspect]
     Indication: ERECTILE DYSFUNCTION
     Dosage: FREQUENCY: PRN,
     Route: 048
     Dates: start: 20040101
  2. TOPROL-XL [Concomitant]
  3. ALTACE [Concomitant]
  4. NEXIUM [Concomitant]
  5. ZETIA [Concomitant]
  6. LEXAPRO [Concomitant]
  7. TAMSULOSIN [Concomitant]
  8. PLAVIX [Concomitant]
  9. CHLORTHALIDONE [Concomitant]

REACTIONS (4)
  - DIABETES MELLITUS [None]
  - DRUG INEFFECTIVE [None]
  - ERECTILE DYSFUNCTION [None]
  - HYPOTENSION [None]
